FAERS Safety Report 5594415-6 (Version None)
Quarter: 2008Q1

REPORT INFORMATION
  Report Type: 
  Country: None (occurrence: None)
  Receive Date: 20080117
  Receipt Date: 20080110
  Transmission Date: 20080703
  Serious: Yes (Hospitalization)
  Sender: FDA-Public Use
  Company Number: BR-JNJFOC-20080102664

PATIENT
  Age: 84 Year
  Sex: Male
  Weight: 80 kg

DRUGS (6)
  1. RAZADYNE ER [Suspect]
     Indication: MEMORY IMPAIRMENT
  2. ASPIRIN [Concomitant]
     Indication: CARDIAC DISORDER
  3. DIVELOL [Concomitant]
     Indication: CARDIAC DISORDER
  4. OMEPRAZOLE [Concomitant]
     Indication: GASTROINTESTINAL DISORDER THERAPY
  5. FUROSEMIDE [Concomitant]
     Indication: DIURETIC THERAPY
  6. SPIRONOLACTONE [Concomitant]
     Indication: DIURETIC THERAPY

REACTIONS (3)
  - FAECES DISCOLOURED [None]
  - PANCREATITIS [None]
  - WRONG TECHNIQUE IN DRUG USAGE PROCESS [None]
